FAERS Safety Report 14879427 (Version 4)
Quarter: 2019Q3

REPORT INFORMATION
  Report Type: Spontaneous
  Country: US (occurrence: US)
  Receive Date: 20180511
  Receipt Date: 20190918
  Transmission Date: 20191004
  Serious: Yes (Hospitalization)
  Sender: FDA-Public Use
  Company Number: US-PFIZER INC-2018192878

PATIENT
  Age: 80 Year
  Sex: Female

DRUGS (1)
  1. AROMASIN [Suspect]
     Active Substance: EXEMESTANE
     Indication: BREAST CANCER FEMALE
     Dosage: 25 MG, UNK
     Dates: start: 2007

REACTIONS (2)
  - Confusional state [Unknown]
  - Malaise [Unknown]
